FAERS Safety Report 16973141 (Version 3)
Quarter: 2020Q4

REPORT INFORMATION
  Report Type: Other
  Country: US (occurrence: US)
  Receive Date: 20191030
  Receipt Date: 20201210
  Transmission Date: 20210113
  Serious: Yes (Other)
  Sender: FDA-Public Use
  Company Number: US-ROCHE-2162378

PATIENT
  Sex: Male

DRUGS (7)
  1. ESBRIET [Suspect]
     Active Substance: PIRFENIDONE
     Indication: GASTROOESOPHAGEAL REFLUX DISEASE
     Dosage: TAKE 1 CAPSULE BY MOUTH 3 TIMES A DAY
     Route: 048
  2. ESBRIET [Suspect]
     Active Substance: PIRFENIDONE
     Indication: INTERSTITIAL LUNG DISEASE
  3. ESBRIET [Suspect]
     Active Substance: PIRFENIDONE
     Indication: IDIOPATHIC PULMONARY FIBROSIS
     Route: 048
  4. ESBRIET [Suspect]
     Active Substance: PIRFENIDONE
     Indication: PULMONARY FIBROSIS
  5. ESBRIET [Suspect]
     Active Substance: PIRFENIDONE
     Indication: COUGH
  6. ESBRIET [Suspect]
     Active Substance: PIRFENIDONE
     Indication: CYSTIC FIBROSIS
     Dosage: 3 CAPSULES 3 TIMES DAILY WITH MEALS;ONGOING:YES
     Route: 048
  7. ESBRIET [Suspect]
     Active Substance: PIRFENIDONE
     Indication: PNEUMONITIS

REACTIONS (6)
  - Treatment noncompliance [Unknown]
  - Dyspnoea [Unknown]
  - Tremor [Not Recovered/Not Resolved]
  - Diabetes mellitus [Unknown]
  - Malaise [Unknown]
  - Spinal stenosis [Unknown]
